FAERS Safety Report 9331222 (Version 1)
Quarter: 2013Q2

REPORT INFORMATION
  Report Type: Spontaneous
  Country: HU (occurrence: HU)
  Receive Date: 20130605
  Receipt Date: 20130605
  Transmission Date: 20140414
  Serious: Yes (Hospitalization)
  Sender: FDA-Public Use
  Company Number: HU-B.I. PHARMACEUTICALS,INC./RIDGEFIELD-2013-AP-00453AP

PATIENT
  Sex: Male
  Weight: 94 kg

DRUGS (5)
  1. PRADAXA [Suspect]
     Indication: ATRIAL FIBRILLATION
     Dosage: 300 MG
     Route: 048
     Dates: start: 20130328, end: 20130402
  2. PRADAXA [Suspect]
     Indication: ATRIAL FIBRILLATION
  3. LOKREN [Concomitant]
     Dosage: 1 OR 1/2 PER DAY
  4. RYTHMONORM [Concomitant]
     Dosage: 50 MG
  5. PORTIRON HCT [Concomitant]
     Dosage: 50/12.5 MG

REACTIONS (3)
  - Cerebral infarction [Recovered/Resolved]
  - Speech disorder [Recovered/Resolved]
  - Disorientation [Recovered/Resolved]
